FAERS Safety Report 23778334 (Version 1)
Quarter: 2024Q2

REPORT INFORMATION
  Report Type: Spontaneous
  Country: RU (occurrence: RU)
  Receive Date: 20240424
  Receipt Date: 20240424
  Transmission Date: 20240716
  Serious: Yes (Other)
  Sender: FDA-Public Use
  Company Number: RU-AMGEN-RUSSP2024079117

PATIENT
  Age: 64 Year
  Sex: Male

DRUGS (4)
  1. PANITUMUMAB [Suspect]
     Active Substance: PANITUMUMAB
     Indication: Pancreatic carcinoma metastatic
     Dosage: 6 MILLIGRAM/KILOGRAM, Q2WK
     Route: 065
     Dates: start: 20220527, end: 2022
  2. PANITUMUMAB [Suspect]
     Active Substance: PANITUMUMAB
     Indication: Off label use
  3. DABRAFENIB [Suspect]
     Active Substance: DABRAFENIB
     Indication: Pancreatic carcinoma metastatic
     Dosage: UNK
     Route: 065
     Dates: start: 20220322, end: 2022
  4. TRAMETINIB [Suspect]
     Active Substance: TRAMETINIB
     Indication: Pancreatic carcinoma metastatic
     Dosage: UNK
     Route: 065
     Dates: start: 20220322, end: 2022

REACTIONS (2)
  - Pancreatic carcinoma metastatic [Unknown]
  - Off label use [Unknown]

NARRATIVE: CASE EVENT DATE: 20220527
